FAERS Safety Report 13671546 (Version 1)
Quarter: 2017Q2

REPORT INFORMATION
  Report Type: Spontaneous
  Country: US (occurrence: US)
  Receive Date: 20170620
  Receipt Date: 20170620
  Transmission Date: 20170830
  Serious: No
  Sender: FDA-Public Use
  Company Number: US-ROCHE-1475772

PATIENT
  Sex: Female

DRUGS (9)
  1. CLARITIN [Concomitant]
     Active Substance: LORATADINE
     Indication: PRURITUS
  2. XELODA [Suspect]
     Active Substance: CAPECITABINE
     Indication: BREAST CANCER
     Dosage: IN THE AM.  7 WEEKS ON, 7 WEEKS OFF
     Route: 048
     Dates: start: 201306
  3. XELODA [Suspect]
     Active Substance: CAPECITABINE
     Dosage: IN THE EVENING.  7 DAYS ON, 7 DAYS OFF
     Route: 048
     Dates: start: 201306
  4. VOLTAREN [Concomitant]
     Active Substance: DICLOFENAC SODIUM
     Indication: PAIN
  5. MIRAPEX [Concomitant]
     Active Substance: PRAMIPEXOLE DIHYDROCHLORIDE
  6. METFORMIN [Concomitant]
     Active Substance: METFORMIN HYDROCHLORIDE
     Indication: DIABETES MELLITUS
     Route: 065
  7. TRAMADOL. [Concomitant]
     Active Substance: TRAMADOL
     Indication: PAIN
  8. GLULISINE INSULIN [Concomitant]
     Indication: DIABETES MELLITUS
  9. ARMOUR THYROID [Concomitant]
     Active Substance: THYROID, PORCINE
     Route: 065

REACTIONS (2)
  - Pruritus [Recovering/Resolving]
  - Palmar-plantar erythrodysaesthesia syndrome [Recovered/Resolved]
